FAERS Safety Report 5134887-4 (Version None)
Quarter: 2006Q4

REPORT INFORMATION
  Report Type: 
  Country: None (occurrence: None)
  Receive Date: 20061025
  Receipt Date: 20061016
  Transmission Date: 20070319
  Serious: Yes (Death, Other)
  Sender: FDA-Public Use
  Company Number: JP-BRISTOL-MYERS SQUIBB COMPANY-13550496

PATIENT
  Age: 56 Year
  Sex: Female

DRUGS (7)
  1. ENDOXAN [Suspect]
     Indication: OVARIAN CANCER
  2. ETOPOSIDE [Suspect]
     Indication: OVARIAN CANCER
     Route: 048
  3. EPIRUBICIN [Concomitant]
  4. CISPLATIN [Concomitant]
  5. PACLITAXEL [Concomitant]
  6. CARBOPLATIN [Concomitant]
  7. TAXOTERE [Concomitant]

REACTIONS (1)
  - ACUTE MYELOID LEUKAEMIA [None]
